FAERS Safety Report 7060209-8 (Version None)
Quarter: 2010Q4

REPORT INFORMATION
  Report Type: 
  Country: None (occurrence: None)
  Receive Date: 20101025
  Receipt Date: 20101011
  Transmission Date: 20110411
  Serious: Yes (Death, Hospitalization, Other)
  Sender: FDA-Public Use
  Company Number: KR-ROCHE-732614

PATIENT
  Age: 51 Year
  Sex: Male

DRUGS (3)
  1. CELLCEPT [Suspect]
     Dosage: DRUG DISCONTINUED.
     Route: 065
  2. TACROLIMUS [Suspect]
     Route: 065
  3. PREDNISOLONE [Suspect]
     Route: 065

REACTIONS (3)
  - BACTERAEMIA [None]
  - CYTOMEGALOVIRUS INFECTION [None]
  - SCLEROSING ENCAPSULATING PERITONITIS [None]
